FAERS Safety Report 4310640-6 (Version None)
Quarter: 2004Q1

REPORT INFORMATION
  Report Type: 
  Country: None (occurrence: None)
  Receive Date: 20040301
  Receipt Date: 20031031
  Transmission Date: 20041129
  Serious: No
  Sender: FDA-Public Use
  Company Number: WAES 0311USA00059

PATIENT
  Age: 69 Year
  Sex: Male

DRUGS (8)
  1. ZETIA [Suspect]
     Indication: BLOOD CHOLESTEROL INCREASED
     Dosage: 10 MG/DAILY/PO
     Route: 048
     Dates: start: 20031024, end: 20031030
  2. ALLEGRA [Concomitant]
  3. PEPCID [Concomitant]
  4. PLAVIX [Concomitant]
  5. SKELAXIN [Concomitant]
  6. ATENOLOL [Concomitant]
  7. DIAZEPAM [Concomitant]
  8. ISOSORBIDE [Concomitant]

REACTIONS (3)
  - JOINT SWELLING [None]
  - MUSCLE CRAMP [None]
  - VISION BLURRED [None]
